FAERS Safety Report 8177387-X (Version None)
Quarter: 2012Q1

REPORT INFORMATION
  Report Type: 
  Country: None (occurrence: None)
  Receive Date: 20120301
  Receipt Date: 20120222
  Transmission Date: 20120608
  Serious: Yes (Hospitalization)
  Sender: FDA-Public Use
  Company Number: DE-ROCHE-1043505

PATIENT
  Sex: Female

DRUGS (2)
  1. MABTHERA [Suspect]
     Indication: SJOGREN'S SYNDROME
     Route: 042
     Dates: start: 20090115
  2. METHYLPREDNISOLONE [Concomitant]

REACTIONS (14)
  - HYPERSENSITIVITY [None]
  - STOMATITIS [None]
  - CHRONIC FATIGUE SYNDROME [None]
  - HYPOACUSIS [None]
  - PURPURA [None]
  - ASTHENIA [None]
  - DEPRESSION [None]
  - DRY MOUTH [None]
  - MEMORY IMPAIRMENT [None]
  - COUGH [None]
  - SWELLING FACE [None]
  - OEDEMA PERIPHERAL [None]
  - HEADACHE [None]
  - DYSPHONIA [None]
